FAERS Safety Report 11499380 (Version 4)
Quarter: 2015Q4

REPORT INFORMATION
  Report Type: Report from Study
  Country: US (occurrence: US)
  Receive Date: 20150914
  Receipt Date: 20151030
  Transmission Date: 20160304
  Serious: Yes (Hospitalization, Other)
  Sender: FDA-Public Use
  Company Number: US-AMGEN-USASL2015093774

PATIENT
  Age: 65 Year
  Sex: Female

DRUGS (1)
  1. ENBREL [Suspect]
     Active Substance: ETANERCEPT
     Indication: RHEUMATOID ARTHRITIS
     Dosage: 50 MG, UNK
     Route: 065
     Dates: start: 2001

REACTIONS (12)
  - Fear [Unknown]
  - Device issue [Unknown]
  - Colon cancer [Not Recovered/Not Resolved]
  - Pain [Unknown]
  - Post procedural infection [Recovered/Resolved]
  - Nodule [Unknown]
  - Pulmonary mass [Unknown]
  - Localised infection [Unknown]
  - Hepatic cancer [Not Recovered/Not Resolved]
  - Hip arthroplasty [Recovered/Resolved]
  - Staphylococcal infection [Recovered/Resolved]
  - Drug effect decreased [Unknown]

NARRATIVE: CASE EVENT DATE: 201012
